FAERS Safety Report 11223766 (Version 2)
Quarter: 2015Q3

REPORT INFORMATION
  Report Type: Spontaneous
  Country: IT (occurrence: IT)
  Receive Date: 20150629
  Receipt Date: 20150707
  Transmission Date: 20151125
  Serious: Yes (Death)
  Sender: FDA-Public Use
  Company Number: IT-ROCHE-1599208

PATIENT
  Age: 80 Year
  Sex: Male

DRUGS (13)
  1. MABTHERA [Suspect]
     Active Substance: RITUXIMAB
     Indication: DIFFUSE LARGE B-CELL LYMPHOMA
     Dosage: 858 MG
     Route: 042
     Dates: start: 20150410, end: 20150504
  2. ENDOXAN [Concomitant]
     Active Substance: CYCLOPHOSPHAMIDE
     Route: 042
  3. MYOCET [Concomitant]
     Active Substance: DOXORUBICIN
     Dosage: ^50 MG POWDER AND ADDITIVES FOR CONCENTRATE FOR LIPOSOMAL DISPERSION FOR INFUSION^ BOX WITH 2 SETS O
     Route: 042
  4. VELBE [Concomitant]
     Active Substance: VINBLASTINE SULFATE
     Dosage: 5.55 MG
     Route: 042
     Dates: start: 20150410, end: 20150526
  5. VINBLASTIN [Concomitant]
     Active Substance: VINBLASTINE
     Dosage: 1 MG/ML 1 VIAL, 10 ML
     Route: 042
  6. MYOCET [Concomitant]
     Active Substance: DOXORUBICIN
     Route: 042
     Dates: start: 20150410, end: 20150526
  7. CYCLOPHOSPHAMIDE. [Concomitant]
     Active Substance: CYCLOPHOSPHAMIDE
  8. DOXORUBICIN [Concomitant]
     Active Substance: DOXORUBICIN
  9. MABTHERA [Suspect]
     Active Substance: RITUXIMAB
     Dosage: VIAL (GLASS) 15 ML (120 MG/ML) - 1 VIAL
     Route: 058
     Dates: start: 20150401, end: 20150529
  10. ENDOXAN [Concomitant]
     Active Substance: CYCLOPHOSPHAMIDE
     Route: 042
     Dates: start: 20150410, end: 20150526
  11. VINCRISTINE [Concomitant]
     Active Substance: VINCRISTINE
  12. MABTHERA [Suspect]
     Active Substance: RITUXIMAB
     Indication: DIFFUSE LARGE B-CELL LYMPHOMA
     Route: 058
     Dates: start: 20150526, end: 20150526
  13. PREDNISONE. [Concomitant]
     Active Substance: PREDNISONE

REACTIONS (3)
  - Progressive multifocal leukoencephalopathy [Fatal]
  - Disorientation [Fatal]
  - Sopor [Fatal]

NARRATIVE: CASE EVENT DATE: 20150519
